FAERS Safety Report 16077154 (Version 1)
Quarter: 2019Q1

REPORT INFORMATION
  Report Type: Spontaneous
  Country: US (occurrence: US)
  Receive Date: 20190315
  Receipt Date: 20190315
  Transmission Date: 20190418
  Serious: Yes (Death, Other)
  Sender: FDA-Public Use
  Company Number: US-BRISTOL-MYERS SQUIBB COMPANY-BMS-2019-025206

PATIENT
  Age: 60 Year
  Sex: Male

DRUGS (1)
  1. NIVOLUMAB [Suspect]
     Active Substance: NIVOLUMAB
     Indication: RENAL CELL CARCINOMA
     Dosage: 3 MICROGRAM/KILOGRAM
     Route: 065
     Dates: start: 201605

REACTIONS (4)
  - Pleural effusion [Unknown]
  - Acute respiratory failure [Fatal]
  - Anaemia [Unknown]
  - Pneumonitis [Unknown]
